FAERS Safety Report 25681765 (Version 3)
Quarter: 2025Q3

REPORT INFORMATION
  Report Type: Spontaneous
  Country: US (occurrence: US)
  Receive Date: 20250814
  Receipt Date: 20250924
  Transmission Date: 20251021
  Serious: Yes (Other)
  Sender: PFIZER
  Company Number: US-MLMSERVICE-20250811-PI603720-00206-3

PATIENT
  Age: 32 Year
  Sex: Female

DRUGS (1)
  1. LORAZEPAM [Suspect]
     Active Substance: LORAZEPAM
     Indication: Catatonia
     Dosage: 6-18 MG/DAY; DAYS 1, 38-155
     Route: 042

REACTIONS (4)
  - Oxygen saturation decreased [Unknown]
  - Obstructive sleep apnoea syndrome [Unknown]
  - Condition aggravated [Unknown]
  - Off label use [Unknown]
